FAERS Safety Report 6374984-9 (Version None)
Quarter: 2009Q3

REPORT INFORMATION
  Report Type: 
  Country: None (occurrence: None)
  Receive Date: 20090924
  Receipt Date: 20090727
  Transmission Date: 20100115
  Serious: No
  Sender: FDA-Public Use
  Company Number: US-ASTRAZENECA-2009UW21369

PATIENT
  Sex: Female

DRUGS (2)
  1. SEROQUEL [Suspect]
     Route: 048
  2. FOOD [Interacting]

REACTIONS (6)
  - CHILLS [None]
  - DIARRHOEA [None]
  - DIZZINESS [None]
  - FOOD INTERACTION [None]
  - NAUSEA [None]
  - VOMITING [None]
